FAERS Safety Report 7425216-1 (Version None)
Quarter: 2011Q2

REPORT INFORMATION
  Report Type: 
  Country: None (occurrence: None)
  Receive Date: 20110420
  Receipt Date: 20110408
  Transmission Date: 20111010
  Serious: Yes (Death, Other)
  Sender: FDA-Public Use
  Company Number: US-RANBAXY-2011RR-43742

PATIENT
  Sex: Female

DRUGS (5)
  1. GABAPENTIN [Suspect]
     Dosage: 800 MG, UNK
  2. GABAPENTIN [Suspect]
     Dosage: 600 MG, UNK
  3. GABAPENTIN [Suspect]
     Dosage: 100 MG, UNK
  4. GABAPENTIN [Suspect]
     Dosage: 300 MG, UNK
  5. GABAPENTIN [Suspect]
     Dosage: 400 MG, UNK

REACTIONS (3)
  - INTENTIONAL OVERDOSE [None]
  - COMPLETED SUICIDE [None]
  - TOXICITY TO VARIOUS AGENTS [None]
